FAERS Safety Report 6206400-1 (Version None)
Quarter: 2009Q2

REPORT INFORMATION
  Report Type: 
  Country: None (occurrence: None)
  Receive Date: 20090527
  Receipt Date: 20090527
  Transmission Date: 20091009
  Serious: Yes (Other)
  Sender: FDA-Public Use
  Company Number: None

PATIENT
  Sex: Female

DRUGS (1)
  1. DILTIAZEM ER CAPS 120 MG TEVA [Suspect]
     Indication: ATRIAL FIBRILLATION
     Dosage: 120 MG BID INJ
     Dates: start: 20090513, end: 20090526

REACTIONS (3)
  - ATRIAL FIBRILLATION [None]
  - HEADACHE [None]
  - PRODUCT SUBSTITUTION ISSUE [None]
